FAERS Safety Report 6765964-X (Version None)
Quarter: 2010Q2

REPORT INFORMATION
  Report Type: 
  Country: None (occurrence: None)
  Receive Date: 20100611
  Receipt Date: 20100603
  Transmission Date: 20101027
  Serious: Yes (Disabling)
  Sender: FDA-Public Use
  Company Number: US-ASTRAZENECA-2010SE25653

PATIENT
  Age: 61 Year
  Sex: Male

DRUGS (2)
  1. SYMBICORT [Suspect]
     Dosage: 180/4.5 TWO INHALATIONS TWO TIMES A DAY
     Route: 055
  2. PROAIR HFA [Concomitant]

REACTIONS (3)
  - DIZZINESS [None]
  - IMMOBILE [None]
  - PARAESTHESIA [None]
